FAERS Safety Report 17780541 (Version 2)
Quarter: 2020Q2

REPORT INFORMATION
  Report Type: Spontaneous
  Country: PL (occurrence: PL)
  Receive Date: 20200513
  Receipt Date: 20200515
  Transmission Date: 20200714
  Serious: Yes (Hospitalization)
  Sender: FDA-Public Use
  Company Number: PL-PFIZER INC-2020180490

PATIENT
  Age: 66 Year
  Sex: Male

DRUGS (6)
  1. CEFTAZIDIME. [Suspect]
     Active Substance: CEFTAZIDIME
     Indication: ANTIBIOTIC THERAPY
  2. CEFAZOLIN [Suspect]
     Active Substance: CEFAZOLIN
     Indication: ANTIBIOTIC THERAPY
  3. CEFTAZIDIME. [Suspect]
     Active Substance: CEFTAZIDIME
     Indication: PERITONITIS
  4. CEFAZOLIN [Suspect]
     Active Substance: CEFAZOLIN
     Indication: CHRONIC KIDNEY DISEASE
     Dosage: 2 G 1XLDAY, CADO METHODS
     Route: 033
  5. CEFAZOLIN [Suspect]
     Active Substance: CEFAZOLIN
     Indication: PERITONITIS
  6. CEFTAZIDIME. [Suspect]
     Active Substance: CEFTAZIDIME
     Indication: CHRONIC KIDNEY DISEASE
     Dosage: 2 G 1X/DAY, CADO METHOD
     Route: 033

REACTIONS (1)
  - Rash pustular [Unknown]
